FAERS Safety Report 18588607 (Version 2)
Quarter: 2021Q1

REPORT INFORMATION
  Report Type: Spontaneous
  Country: US (occurrence: US)
  Receive Date: 20201207
  Receipt Date: 20210126
  Transmission Date: 20210419
  Serious: No
  Sender: FDA-Public Use
  Company Number: US-AMGEN-USASP2020197604

PATIENT
  Sex: Male

DRUGS (12)
  1. DEXTROAMPHETAMINE [DEXAMFETAMINE] [Concomitant]
     Active Substance: DEXTROAMPHETAMINE
  2. ATORVASTATIN [Concomitant]
     Active Substance: ATORVASTATIN
  3. CORLANOR [Concomitant]
     Active Substance: IVABRADINE HYDROCHLORIDE
     Dosage: UNK
  4. ALPRAZOLAM. [Concomitant]
     Active Substance: ALPRAZOLAM
  5. DILTIAZEM. [Concomitant]
     Active Substance: DILTIAZEM
  6. TEMAZEPAM. [Concomitant]
     Active Substance: TEMAZEPAM
  7. LISINOPRIL. [Concomitant]
     Active Substance: LISINOPRIL
  8. METOPROLOL. [Concomitant]
     Active Substance: METOPROLOL
  9. OTEZLA [Suspect]
     Active Substance: APREMILAST
     Indication: PSORIATIC ARTHROPATHY
     Dosage: 30 MILLIGRAM, BID
     Route: 048
     Dates: start: 20180324
  10. AMPHETAMINE [Concomitant]
     Active Substance: AMPHETAMINE
  11. GABAPENTIN. [Concomitant]
     Active Substance: GABAPENTIN
  12. DILT?XR [Concomitant]
     Active Substance: DILTIAZEM
     Dosage: UNK

REACTIONS (1)
  - Depression [Not Recovered/Not Resolved]
